FAERS Safety Report 9462764 (Version 1)
Quarter: 2013Q3

REPORT INFORMATION
  Report Type: Report from Study
  Country: US (occurrence: US)
  Receive Date: 20130816
  Receipt Date: 20130816
  Transmission Date: 20140515
  Serious: Yes (Death)
  Sender: FDA-Public Use
  Company Number: US-ROCHE-1262447

PATIENT
  Age: 80 Year
  Sex: Male

DRUGS (2)
  1. RITUXAN [Suspect]
     Indication: NON-HODGKIN^S LYMPHOMA
     Dosage: 1L DOSE: 375MG/M^2
     Route: 065
  2. RITUXAN [Suspect]
     Dosage: 2L DOSE:375MG/M^2
     Route: 065

REACTIONS (1)
  - Death [Fatal]
